FAERS Safety Report 14013464 (Version 1)
Quarter: 2017Q3

REPORT INFORMATION
  Report Type: Spontaneous
  Country: US (occurrence: US)
  Receive Date: 20170926
  Receipt Date: 20170926
  Transmission Date: 20171128
  Serious: No
  Sender: FDA-Public Use
  Company Number: US-DEPOMED, INC.-US-2017DEP000848

PATIENT

DRUGS (1)
  1. GRALISE [Suspect]
     Active Substance: GABAPENTIN
     Indication: BACK PAIN
     Dosage: 1800 MG, QD
     Route: 048
     Dates: start: 20170329, end: 20170405

REACTIONS (7)
  - Product use in unapproved indication [Recovered/Resolved]
  - Lymphadenopathy [Recovered/Resolved]
  - Abnormal faeces [Recovered/Resolved]
  - Pyrexia [Recovered/Resolved]
  - Urine abnormality [Recovered/Resolved]
  - Decreased appetite [Recovered/Resolved]
  - Insomnia [Recovered/Resolved]

NARRATIVE: CASE EVENT DATE: 20170329
